FAERS Safety Report 11691205 (Version 1)
Quarter: 2015Q4

REPORT INFORMATION
  Report Type: Spontaneous
  Country: US (occurrence: US)
  Receive Date: 20151102
  Receipt Date: 20151102
  Transmission Date: 20160304
  Serious: No
  Sender: FDA-Public Use
  Company Number: US-PERRIGO-15US008335

PATIENT
  Age: 61 Year
  Sex: Female
  Weight: 119.27 kg

DRUGS (3)
  1. NICOTINE MINI MINT 4 MG 957 [Suspect]
     Active Substance: NICOTINE
     Dosage: 4 MG, TWICE IN 3 HOURS
     Route: 002
     Dates: start: 20150809, end: 20150809
  2. IMITREX [Concomitant]
     Active Substance: SUMATRIPTAN\SUMATRIPTAN SUCCINATE
     Indication: MIGRAINE
     Dosage: UNK
     Route: 065
  3. NICOTINE MINI MINT 4 MG 957 [Suspect]
     Active Substance: NICOTINE
     Indication: SMOKING CESSATION THERAPY
     Dosage: 4 MG, 2 TO 3 TIMES DAILY
     Route: 002
     Dates: start: 201502, end: 20150808

REACTIONS (2)
  - Migraine [Recovered/Resolved]
  - Headache [Recovered/Resolved]

NARRATIVE: CASE EVENT DATE: 20150809
